FAERS Safety Report 4267222-4 (Version None)
Quarter: 2004Q1

REPORT INFORMATION
  Report Type: 
  Country: None (occurrence: None)
  Receive Date: 20040107
  Receipt Date: 20031225
  Transmission Date: 20041129
  Serious: Yes (Hospitalization)
  Sender: FDA-Public Use
  Company Number: 2003AP04543

PATIENT
  Age: 78 Year
  Sex: Male

DRUGS (7)
  1. CASODEX [Suspect]
     Indication: PROSTATE CANCER
     Dosage: 80 MG DAILY PO
     Route: 048
     Dates: start: 20001221
  2. LEUPROLIDE ACETATE [Suspect]
     Indication: PROSTATE CANCER
     Dosage: 3.75 MG Q4WK SQ
     Route: 058
     Dates: start: 20010104
  3. DIAZEPAM [Concomitant]
  4. EVAMYL [Concomitant]
  5. HACHIMIJIO-GAN [Concomitant]
  6. TECIPUL [Concomitant]
  7. HARNAL [Concomitant]

REACTIONS (4)
  - HEADACHE [None]
  - HYPERHIDROSIS [None]
  - NIGHT SWEATS [None]
  - PERIPHERAL COLDNESS [None]
